FAERS Safety Report 15972596 (Version 1)
Quarter: 2019Q1

REPORT INFORMATION
  Report Type: Spontaneous
  Country: NL (occurrence: NL)
  Receive Date: 20190216
  Receipt Date: 20190216
  Transmission Date: 20190418
  Serious: Yes (Hospitalization)
  Sender: FDA-Public Use
  Company Number: NL-TEVA-2019-NL-1012159

PATIENT
  Age: 33 Year
  Sex: Female
  Weight: 85 kg

DRUGS (7)
  1. FERROFUMARAAT [Concomitant]
     Dosage: 400 MILLIGRAM DAILY; 2DD 200MG
  2. ESCITALOPRAM [Concomitant]
     Active Substance: ESCITALOPRAM OXALATE
     Dosage: 30 MILLIGRAM DAILY; 1DD 30MG
  3. ZOPICLON [Concomitant]
     Active Substance: ZOPICLONE
     Dosage: 22 MILLIGRAM DAILY; 1DD 22.5 MG
  4. OXAZEPAM. [Concomitant]
     Active Substance: OXAZEPAM
     Dosage: IF NECESSARY 2DD 10MG
  5. AMITRIPTYLINE [Concomitant]
     Active Substance: AMITRIPTYLINE
     Dosage: 25 MILLIGRAM DAILY; 1DD 25MG
  6. QUETIAPINE TABLET MET GEREGULEERDE AFGIFTE, 300 MG (MILLIGRAM) [Suspect]
     Active Substance: QUETIAPINE
     Indication: MAJOR DEPRESSION
     Dosage: 300 MILLIGRAM DAILY; 1DD1
     Dates: start: 2017, end: 20190115
  7. METFORMINE [Concomitant]
     Active Substance: METFORMIN HYDROCHLORIDE
     Dosage: 1000 MILLIGRAM DAILY; 2DD 500MG

REACTIONS (2)
  - Epilepsy [Recovered/Resolved]
  - Overdose [Recovered/Resolved]

NARRATIVE: CASE EVENT DATE: 20190115
